FAERS Safety Report 8156394-7 (Version None)
Quarter: 2012Q1

REPORT INFORMATION
  Report Type: 
  Country: None (occurrence: None)
  Receive Date: 20120222
  Receipt Date: 20120214
  Transmission Date: 20120608
  Serious: Yes (Other)
  Sender: FDA-Public Use
  Company Number: US-CELGENEUS-163-20785-12021086

PATIENT
  Sex: Female
  Weight: 73.548 kg

DRUGS (10)
  1. ESTRACE [Concomitant]
     Route: 065
  2. SYNTHROID [Concomitant]
     Route: 065
  3. FLUTISONE [Concomitant]
     Route: 065
  4. THALOMID [Suspect]
     Dosage: 50 MILLIGRAM
     Route: 048
     Dates: start: 20100801
  5. THALOMID [Suspect]
     Dosage: 50 MILLIGRAM
     Route: 048
     Dates: start: 20120101, end: 20120207
  6. GABAPENTIN [Concomitant]
     Route: 065
  7. THALOMID [Suspect]
     Dosage: 50 MILLIGRAM
     Route: 048
     Dates: start: 20110701
  8. ASPIRIN [Concomitant]
     Route: 065
  9. THALOMID [Suspect]
     Indication: MULTIPLE MYELOMA
     Dosage: 50 MILLIGRAM
     Route: 048
     Dates: start: 20081101
  10. TEMAZEPAM [Concomitant]
     Route: 065

REACTIONS (3)
  - DRUG INEFFECTIVE [None]
  - NEUROPATHY PERIPHERAL [None]
  - KNEE ARTHROPLASTY [None]
